FAERS Safety Report 6438095-6 (Version None)
Quarter: 2009Q4

REPORT INFORMATION
  Report Type: 
  Country: None (occurrence: None)
  Receive Date: 20091112
  Receipt Date: 20091104
  Transmission Date: 20100525
  Serious: Yes (Hospitalization, Other)
  Sender: FDA-Public Use
  Company Number: US-ELI_LILLY_AND_COMPANY-US200910003553

PATIENT
  Sex: Male
  Weight: 97.506 kg

DRUGS (12)
  1. BYETTA [Suspect]
     Indication: TYPE 2 DIABETES MELLITUS
     Dosage: 5 UG, 2/D
     Route: 058
     Dates: start: 20090220, end: 20090101
  2. BYETTA [Suspect]
     Dosage: 10 UG, 2/D
     Route: 058
     Dates: start: 20090301, end: 20090101
  3. BYETTA [Suspect]
     Dosage: 5 UG, 2/D
     Dates: start: 20090101, end: 20090101
  4. BYETTA [Suspect]
     Dosage: 5 UG, DAILY (1/D)
     Route: 058
     Dates: start: 20090801, end: 20090910
  5. ACE INHIBITOR NOS [Concomitant]
  6. FOSINOPRIL SODIUM [Concomitant]
     Indication: HYPERTENSION
     Dosage: 40 MG, DAILY (1/D)
     Route: 048
  7. AMLODIPINE [Concomitant]
     Indication: HYPERTENSION
     Dosage: 10 MG, DAILY (1/D)
     Route: 048
  8. SIMVASTATIN [Concomitant]
     Indication: HYPERLIPIDAEMIA
     Dosage: 40 MG, EACH EVENING
     Route: 048
  9. FLUOXETINE [Concomitant]
     Indication: DEPRESSION
     Dosage: 20 MG, DAILY (1/D)
     Route: 048
  10. ACTOS [Concomitant]
     Dosage: 30 MG, DAILY (1/D)
     Dates: end: 20090220
  11. ACTONEL [Concomitant]
     Dosage: 30 MG, DAILY (1/D)
  12. TRICOR [Concomitant]
     Indication: HYPERLIPIDAEMIA
     Dosage: 145 MG, DAILY (1/D)
     Route: 048

REACTIONS (4)
  - EPIDIDYMITIS [None]
  - PANCREATITIS [None]
  - RENAL CELL CARCINOMA [None]
  - WEIGHT DECREASED [None]
